FAERS Safety Report 4441448-9 (Version None)
Quarter: 2004Q3

REPORT INFORMATION
  Report Type: 
  Country: None (occurrence: None)
  Receive Date: 20040728
  Receipt Date: 20040503
  Transmission Date: 20050211
  Serious: No
  Sender: FDA-Public Use
  Company Number: USA040566551

PATIENT
  Age: 35 Year
  Sex: Male

DRUGS (4)
  1. STRATTERA [Suspect]
     Indication: DISTURBANCE IN ATTENTION
     Dosage: 120 MG DAY
     Dates: start: 20040201
  2. NEURONTIN [Concomitant]
  3. EXELON [Concomitant]
  4. ARICEPT [Concomitant]

REACTIONS (1)
  - PRESCRIBED OVERDOSE [None]
